FAERS Safety Report 7541548-0 (Version None)
Quarter: 2011Q2

REPORT INFORMATION
  Report Type: 
  Country: None (occurrence: None)
  Receive Date: 20110613
  Receipt Date: 20110607
  Transmission Date: 20111010
  Serious: No
  Sender: FDA-Public Use
  Company Number: US-PFIZER INC-2011089652

PATIENT
  Sex: Male

DRUGS (6)
  1. LIPITOR [Suspect]
     Dosage: 20 MG, UNK
     Route: 048
  2. CUMADIN [Concomitant]
     Dosage: UNK
  3. ZETIA [Concomitant]
     Dosage: UNK
     Dates: start: 20030916
  4. LIPITOR [Suspect]
     Dosage: 10 MG, UNK
     Route: 048
  5. LIPITOR [Suspect]
     Indication: HYPERLIPIDAEMIA
     Dosage: 10 MG, UNK
     Route: 048
     Dates: start: 20030104
  6. METOPROLOL [Concomitant]
     Dosage: UNK

REACTIONS (2)
  - CHEST PAIN [None]
  - MUSCULOSKELETAL CHEST PAIN [None]
